FAERS Safety Report 24796821 (Version 7)
Quarter: 2025Q3

REPORT INFORMATION
  Report Type: Report from Study
  Country: US (occurrence: US)
  Receive Date: 20250101
  Receipt Date: 20250715
  Transmission Date: 20251020
  Serious: Yes (Hospitalization, Other)
  Sender: UCB
  Company Number: US-UCBSA-2024064839

PATIENT
  Sex: Male
  Weight: 38 kg

DRUGS (10)
  1. FINTEPLA [Suspect]
     Active Substance: FENFLURAMINE
     Indication: Lennox-Gastaut syndrome
     Dosage: 5.9 MILLILITER, 2X/DAY (BID)
     Dates: start: 20241121
  2. FINTEPLA [Suspect]
     Active Substance: FENFLURAMINE
     Dosage: 5.9 MILLILITER, 2X/DAY (BID)
     Dates: start: 2024
  3. FINTEPLA [Suspect]
     Active Substance: FENFLURAMINE
     Dosage: 3.5 MILLILITER, 2X/DAY (BID)
     Dates: start: 2024
  4. FINTEPLA [Suspect]
     Active Substance: FENFLURAMINE
     Dosage: 6.2 MILLILITER, 2X/DAY (BID)
     Dates: start: 2024
  5. FINTEPLA [Suspect]
     Active Substance: FENFLURAMINE
     Dosage: 1.5 MILLILITER, 2X/DAY (BID)
     Dates: start: 2024
  6. FINTEPLA [Suspect]
     Active Substance: FENFLURAMINE
     Dosage: 1.5 MILLILITER, 2X/DAY (BID)
  7. FINTEPLA [Suspect]
     Active Substance: FENFLURAMINE
     Dosage: 3.5 MILLIGRAM/KILOGRAM, ONCE DAILY (QD)
  8. FINTEPLA [Suspect]
     Active Substance: FENFLURAMINE
     Dosage: 2.5 MILLILITER, 2X/DAY (BID)
  9. EPIDIOLEX [Concomitant]
     Active Substance: CANNABIDIOL
     Indication: Seizure
  10. ONFI [Concomitant]
     Active Substance: CLOBAZAM
     Indication: Seizure

REACTIONS (12)
  - Seizure [Not Recovered/Not Resolved]
  - Screaming [Not Recovered/Not Resolved]
  - Middle insomnia [Not Recovered/Not Resolved]
  - Crying [Not Recovered/Not Resolved]
  - Withdrawal syndrome [Not Recovered/Not Resolved]
  - Gelastic seizure [Not Recovered/Not Resolved]
  - Allan-Herndon-Dudley syndrome [Not Recovered/Not Resolved]
  - Somnolence [Unknown]
  - Tachycardia [Not Recovered/Not Resolved]
  - Irritability [Not Recovered/Not Resolved]
  - Retching [Not Recovered/Not Resolved]
  - Drug ineffective [Unknown]

NARRATIVE: CASE EVENT DATE: 20240101
